FAERS Safety Report 4643159-3 (Version None)
Quarter: 2005Q2

REPORT INFORMATION
  Report Type: 
  Country: None (occurrence: None)
  Receive Date: 20050422
  Receipt Date: 20030605
  Transmission Date: 20051028
  Serious: Yes (Hospitalization, Other)
  Sender: FDA-Public Use
  Company Number: US-MERCK-0306USA00927

PATIENT
  Age: 38 Year
  Sex: Female
  Weight: 159 kg

DRUGS (8)
  1. VIOXX [Suspect]
     Indication: INFLAMMATION
     Route: 048
     Dates: start: 20010315, end: 20021001
  2. VIOXX [Suspect]
     Route: 048
     Dates: start: 20021022, end: 20040223
  3. CELEBREX [Concomitant]
     Route: 065
  4. CLONIDINE [Concomitant]
     Route: 065
  5. DEMADEX [Concomitant]
     Route: 065
  6. DIGITEK [Concomitant]
     Route: 065
  7. ASPIRIN [Concomitant]
     Route: 065
  8. ACCUPRIL [Concomitant]
     Route: 065

REACTIONS (19)
  - ADVERSE EVENT [None]
  - ANGINA PECTORIS [None]
  - ASTHMA [None]
  - BACK PAIN [None]
  - CARDIAC FAILURE CONGESTIVE [None]
  - CHRONIC OBSTRUCTIVE PULMONARY DISEASE [None]
  - CONGESTIVE CARDIOMYOPATHY [None]
  - CONVULSION [None]
  - DIVERTICULUM INTESTINAL HAEMORRHAGIC [None]
  - GASTROOESOPHAGEAL REFLUX DISEASE [None]
  - HYPERLIPIDAEMIA [None]
  - HYPERTENSION [None]
  - HYPERTENSIVE HEART DISEASE [None]
  - LIPOMA [None]
  - MITRAL VALVE INCOMPETENCE [None]
  - MUSCLE SPASMS [None]
  - PAIN IN EXTREMITY [None]
  - SPINAL OSTEOARTHRITIS [None]
  - TENDONITIS [None]
